FAERS Safety Report 18525091 (Version 1)
Quarter: 2020Q4

REPORT INFORMATION
  Report Type: Spontaneous
  Country: US (occurrence: US)
  Receive Date: 20201120
  Receipt Date: 20201120
  Transmission Date: 20210114
  Serious: Yes (Other)
  Sender: FDA-Public Use
  Company Number: US-DRREDDYS-USA/USA/20/0129087

PATIENT
  Age: 49 Year

DRUGS (3)
  1. BORTEZOMIB. [Suspect]
     Active Substance: BORTEZOMIB
     Indication: WALDENSTROM^S MACROGLOBULINAEMIA
  2. EVEROLIMUS. [Suspect]
     Active Substance: EVEROLIMUS
     Indication: WALDENSTROM^S MACROGLOBULINAEMIA
  3. RITUXIMAB. [Suspect]
     Active Substance: RITUXIMAB
     Indication: WALDENSTROM^S MACROGLOBULINAEMIA

REACTIONS (1)
  - Thrombotic microangiopathy [Recovering/Resolving]
